FAERS Safety Report 10014472 (Version 1)
Quarter: 2014Q1

REPORT INFORMATION
  Report Type: Spontaneous
  Country: US (occurrence: US)
  Receive Date: 20140317
  Receipt Date: 20140317
  Transmission Date: 20141002
  Serious: Yes (Hospitalization)
  Sender: FDA-Public Use
  Company Number: US-BAYER-2014-034629

PATIENT
  Age: 38 Year
  Sex: Male
  Weight: 137.4 kg

DRUGS (1)
  1. KOGENATE FS [Suspect]
     Indication: HAEMOPHILIA

REACTIONS (1)
  - Obesity [None]
